FAERS Safety Report 8574647-5 (Version None)
Quarter: 2012Q3

REPORT INFORMATION
  Report Type: 
  Country: None (occurrence: None)
  Receive Date: 20120807
  Receipt Date: 20120802
  Transmission Date: 20120928
  Serious: Yes (Death)
  Sender: FDA-Public Use
  Company Number: US-009507513-1208USA001838

PATIENT

DRUGS (2)
  1. PEG-INTRON [Suspect]
     Indication: HEPATITIS C
     Dosage: 1 DF, QW
  2. REBETOL [Suspect]
     Indication: HEPATITIS C

REACTIONS (1)
  - HEPATIC CIRRHOSIS [None]
